FAERS Safety Report 19360030 (Version 14)
Quarter: 2021Q3

REPORT INFORMATION
  Report Type: Report from Study
  Country: AU (occurrence: AU)
  Receive Date: 20210601
  Receipt Date: 20210817
  Transmission Date: 20211014
  Serious: Yes (Hospitalization, Other)
  Sender: FDA-Public Use
  Company Number: AU-BIOGEN-2020BI00937957

PATIENT
  Age: 51 Year
  Sex: Female

DRUGS (38)
  1. TECFIDERA [Suspect]
     Active Substance: DIMETHYL FUMARATE
     Dosage: STARTING DOSE
     Route: 048
     Dates: start: 20201026
  2. TECFIDERA [Suspect]
     Active Substance: DIMETHYL FUMARATE
     Dosage: EVENING DOSE
     Route: 048
  3. TECFIDERA [Suspect]
     Active Substance: DIMETHYL FUMARATE
     Dosage: ALTERNATING EVENING DOSE OF?120MG /240MG DOSE
     Route: 048
  4. TECFIDERA [Suspect]
     Active Substance: DIMETHYL FUMARATE
     Dosage: MAINTENANCE DOSE
     Route: 048
  5. PANADOL [Concomitant]
     Active Substance: ACETAMINOPHEN
     Indication: PRODUCT USED FOR UNKNOWN INDICATION
     Route: 065
  6. COLOFAC [Concomitant]
     Active Substance: MEBEVERINE HYDROCHLORIDE
     Route: 065
  7. TECFIDERA [Suspect]
     Active Substance: DIMETHYL FUMARATE
     Route: 048
     Dates: start: 20201014, end: 20210121
  8. TECFIDERA [Suspect]
     Active Substance: DIMETHYL FUMARATE
     Dosage: 120MG NOCTE
     Route: 048
     Dates: start: 20210123
  9. ENDEP [Concomitant]
     Active Substance: AMITRIPTYLINE HYDROCHLORIDE
     Indication: PRODUCT USED FOR UNKNOWN INDICATION
     Route: 065
  10. TOPAMAX [Concomitant]
     Active Substance: TOPIRAMATE
     Route: 065
  11. TECFIDERA [Suspect]
     Active Substance: DIMETHYL FUMARATE
     Route: 048
     Dates: start: 20201109
  12. TECFIDERA [Suspect]
     Active Substance: DIMETHYL FUMARATE
     Dosage: 240MG EVERY MORNING WITH ALTERNATING 120/240MG EACH NIGHT
     Route: 048
  13. TECFIDERA [Suspect]
     Active Substance: DIMETHYL FUMARATE
     Dosage: MAINTENANCE DOSE
     Route: 048
     Dates: start: 20201014
  14. TECFIDERA [Suspect]
     Active Substance: DIMETHYL FUMARATE
     Dosage: 240MG MANE
     Route: 048
     Dates: start: 20201014
  15. BUSCOPAN [Concomitant]
     Active Substance: BUTYLSCOPOLAMINE BROMIDE
     Route: 065
  16. DE GAS [Concomitant]
     Indication: PRODUCT USED FOR UNKNOWN INDICATION
     Route: 065
  17. DE GAS [Concomitant]
     Route: 065
  18. FOLIC ACID. [Concomitant]
     Active Substance: FOLIC ACID
     Indication: PRODUCT USED FOR UNKNOWN INDICATION
     Route: 065
  19. TECFIDERA [Suspect]
     Active Substance: DIMETHYL FUMARATE
     Route: 048
     Dates: end: 20201122
  20. OROXINE [Concomitant]
     Active Substance: LEVOTHYROXINE SODIUM
     Dosage: (1 TAB ON MONDAYS)
     Route: 065
  21. TECFIDERA [Suspect]
     Active Substance: DIMETHYL FUMARATE
     Route: 048
     Dates: start: 20201108
  22. TECFIDERA [Suspect]
     Active Substance: DIMETHYL FUMARATE
     Dosage: ALTERNATE DAYS
     Route: 048
  23. ENDEP [Concomitant]
     Active Substance: AMITRIPTYLINE HYDROCHLORIDE
     Route: 065
  24. BUSCOPAN [Concomitant]
     Active Substance: BUTYLSCOPOLAMINE BROMIDE
     Indication: PRODUCT USED FOR UNKNOWN INDICATION
     Route: 065
  25. COLOFAC [Concomitant]
     Active Substance: MEBEVERINE HYDROCHLORIDE
     Indication: IRRITABLE BOWEL SYNDROME
     Route: 065
  26. TECFIDERA [Suspect]
     Active Substance: DIMETHYL FUMARATE
     Dosage: MAINTENANCE DOSE
     Route: 048
     Dates: start: 20210122, end: 20210122
  27. TECFIDERA [Suspect]
     Active Substance: DIMETHYL FUMARATE
     Dosage: 240 MG MANE
     Route: 048
     Dates: start: 20210123
  28. TECFIDERA [Suspect]
     Active Substance: DIMETHYL FUMARATE
     Dosage: ALTERNATING EVENING DOSE OF?120MG /240MG DOSE
     Route: 048
  29. TECFIDERA [Suspect]
     Active Substance: DIMETHYL FUMARATE
     Route: 048
     Dates: end: 20210404
  30. TECFIDERA [Suspect]
     Active Substance: DIMETHYL FUMARATE
     Dosage: MAINTENANCE DOSE
     Route: 048
     Dates: start: 20210405
  31. TECFIDERA [Suspect]
     Active Substance: DIMETHYL FUMARATE
     Indication: MULTIPLE SCLEROSIS
     Route: 048
     Dates: start: 20201014, end: 20201031
  32. TECFIDERA [Suspect]
     Active Substance: DIMETHYL FUMARATE
     Dosage: 120MG NOCTE
     Route: 048
     Dates: start: 20201014
  33. TECFIDERA [Suspect]
     Active Substance: DIMETHYL FUMARATE
     Dosage: MORNING DOSE
     Route: 048
  34. LITHIUM. [Concomitant]
     Active Substance: LITHIUM
     Indication: PRODUCT USED FOR UNKNOWN INDICATION
     Dosage: 1/2 TAB MANE AND 1 TABLET NOCTE
     Route: 065
  35. OROXINE [Concomitant]
     Active Substance: LEVOTHYROXINE SODIUM
     Indication: PRODUCT USED FOR UNKNOWN INDICATION
     Dosage: 1 TAB TUES?SUNDAY
     Route: 065
  36. PANADEINE EXTRA [Concomitant]
     Indication: PRODUCT USED FOR UNKNOWN INDICATION
     Dosage: 500MG/15MG TAB (1?2 TABS EVERY 4?6 HOURS)
     Route: 065
  37. TOPAMAX [Concomitant]
     Active Substance: TOPIRAMATE
     Indication: PRODUCT USED FOR UNKNOWN INDICATION
     Route: 065
  38. TOPIRAMATE. [Concomitant]
     Active Substance: TOPIRAMATE
     Indication: PRODUCT USED FOR UNKNOWN INDICATION
     Dosage: DOSE REDUCED
     Route: 065

REACTIONS (61)
  - Hepatic steatosis [Not Recovered/Not Resolved]
  - Paraesthesia [Recovered/Resolved]
  - Drug interaction [Not Recovered/Not Resolved]
  - Micturition urgency [Unknown]
  - Abdominal discomfort [Not Recovered/Not Resolved]
  - Diarrhoea [Recovered/Resolved]
  - Flushing [Recovered/Resolved]
  - Abdominal pain upper [Recovered/Resolved]
  - Post-traumatic stress disorder [Not Recovered/Not Resolved]
  - Dysphemia [Not Recovered/Not Resolved]
  - Pyrexia [Recovered/Resolved]
  - Hyporeflexia [Not Recovered/Not Resolved]
  - Pruritus [Recovered/Resolved]
  - Abdominal pain [Recovered/Resolved]
  - Accidental overdose [Recovered/Resolved]
  - Insomnia [Not Recovered/Not Resolved]
  - Fatigue [Recovered/Resolved]
  - Hot flush [Recovered/Resolved]
  - Nausea [Not Recovered/Not Resolved]
  - Metabolic encephalopathy [Not Recovered/Not Resolved]
  - Prescribed underdose [Not Recovered/Not Resolved]
  - Gastrooesophageal reflux disease [Not Recovered/Not Resolved]
  - Haemorrhoidal haemorrhage [Not Recovered/Not Resolved]
  - Post procedural infection [Not Recovered/Not Resolved]
  - Trigeminal neuralgia [Not Recovered/Not Resolved]
  - Taste disorder [Not Recovered/Not Resolved]
  - Flatulence [Recovered/Resolved]
  - Headache [Not Recovered/Not Resolved]
  - Lymphocyte count abnormal [Unknown]
  - Mental disorder [Unknown]
  - Anger [Unknown]
  - Dysuria [Recovered/Resolved]
  - Chest discomfort [Not Recovered/Not Resolved]
  - Depressed mood [Unknown]
  - Band sensation [Not Recovered/Not Resolved]
  - Pain [Not Recovered/Not Resolved]
  - Multiple sclerosis relapse [Not Recovered/Not Resolved]
  - Swollen tongue [Not Recovered/Not Resolved]
  - Nightmare [Not Recovered/Not Resolved]
  - Abdominal distension [Not Recovered/Not Resolved]
  - Poor quality sleep [Not Recovered/Not Resolved]
  - Dyschezia [Recovered/Resolved]
  - Pain in extremity [Not Recovered/Not Resolved]
  - Muscle spasms [Not Recovered/Not Resolved]
  - Constipation [Not Recovered/Not Resolved]
  - Restlessness [Unknown]
  - Eye pain [Not Recovered/Not Resolved]
  - Candida infection [Not Recovered/Not Resolved]
  - Fall [Recovered/Resolved]
  - Sensory disturbance [Not Recovered/Not Resolved]
  - Conversion disorder [Not Recovered/Not Resolved]
  - Gastrointestinal tract irritation [Not Recovered/Not Resolved]
  - Neuralgia [Not Recovered/Not Resolved]
  - Asthenia [Not Recovered/Not Resolved]
  - Stress [Not Recovered/Not Resolved]
  - Gastrointestinal sounds abnormal [Unknown]
  - Faeces hard [Recovered/Resolved]
  - Electrocardiogram abnormal [Unknown]
  - Ligament sprain [Not Recovered/Not Resolved]
  - Choking [Not Recovered/Not Resolved]
  - Medical device pain [Unknown]

NARRATIVE: CASE EVENT DATE: 20201018
